FAERS Safety Report 8962256 (Version 1)
Quarter: 2012Q4

REPORT INFORMATION
  Report Type: 
  Country: US (occurrence: US)
  Receive Date: 20121212
  Receipt Date: 20121212
  Transmission Date: 20130627
  Serious: Yes (Other)
  Sender: FDA-Public Use
  Company Number: US-GILEAD-2012-0065919

PATIENT
  Sex: Female

DRUGS (1)
  1. LETAIRIS [Suspect]
     Indication: PULMONARY HYPERTENSION
     Dosage: 5 mg, UNK
     Route: 048
     Dates: end: 20121120

REACTIONS (4)
  - Renal failure chronic [Unknown]
  - Pulmonary hypertension [Unknown]
  - Essential thrombocythaemia [Unknown]
  - Right ventricular failure [Unknown]
